FAERS Safety Report 14492458 (Version 3)
Quarter: 2018Q3

REPORT INFORMATION
  Report Type: Spontaneous
  Country: US (occurrence: US)
  Receive Date: 20180206
  Receipt Date: 20180808
  Transmission Date: 20181010
  Serious: Yes (Other)
  Sender: FDA-Public Use
  Company Number: US-PFIZER INC-2018049948

PATIENT
  Age: 69 Year
  Sex: Female

DRUGS (1)
  1. XELJANZ [Suspect]
     Active Substance: TOFACITINIB CITRATE
     Dosage: 5 MG

REACTIONS (7)
  - Rheumatoid arthritis [Unknown]
  - Diabetes mellitus [Unknown]
  - Drug ineffective [Unknown]
  - Blood test abnormal [Unknown]
  - Renal failure [Unknown]
  - Condition aggravated [Unknown]
  - Blindness [Unknown]
